FAERS Safety Report 8850789 (Version 2)
Quarter: 2014Q2

REPORT INFORMATION
  Report Type: Report from Study
  Country: US (occurrence: US)
  Receive Date: 20121019
  Receipt Date: 20140424
  Transmission Date: 20141212
  Serious: Yes (Other)
  Sender: FDA-Public Use
  Company Number: US-UCBSA-062430

PATIENT
  Age: 48 Year
  Sex: Female
  Weight: 86.1 kg

DRUGS (4)
  1. CIMZIA [Suspect]
     Indication: CROHN^S DISEASE
     Dosage: DOSE: 400 MG
     Dates: start: 20090708
  2. ASCORBIC ACID [Concomitant]
     Indication: PROPHYLAXIS
     Route: 048
  3. CALCIUM-VITAMIN D [Concomitant]
     Indication: PROPHYLAXIS
     Dosage: 1  TABLET
     Route: 048
  4. MULTIVITAMIN WITH IRON [Concomitant]
     Indication: PROPHYLAXIS
     Dosage: 2 TABLETS
     Route: 048

REACTIONS (1)
  - Staphylococcal infection [Recovered/Resolved]
